FAERS Safety Report 6862581-8 (Version None)
Quarter: 2010Q3

REPORT INFORMATION
  Report Type: 
  Country: None (occurrence: None)
  Receive Date: 20100721
  Receipt Date: 20100706
  Transmission Date: 20110219
  Serious: Yes (Hospitalization, Disabling)
  Sender: FDA-Public Use
  Company Number: US-ELI_LILLY_AND_COMPANY-US201006002533

PATIENT
  Sex: Female
  Weight: 71.8 kg

DRUGS (12)
  1. GEMCITABINE HCL [Suspect]
     Indication: NON-SMALL CELL LUNG CANCER
     Dosage: 1870 MG, OTHER
     Route: 042
     Dates: start: 20100527, end: 20100527
  2. CETUXIMAB [Suspect]
     Indication: NON-SMALL CELL LUNG CANCER
     Dosage: 748 MG, OTHER
     Route: 042
     Dates: start: 20100527, end: 20100527
  3. OTHER PHARMA COMPANY INV DRUG [Suspect]
     Indication: NON-SMALL CELL LUNG CANCER
     Dosage: 441 MG, OTHER
     Route: 042
     Dates: start: 20100527, end: 20100527
  4. CISPLATIN [Suspect]
     Indication: NON-SMALL CELL LUNG CANCER
     Dosage: 140.25 MG, OTHER
     Route: 042
     Dates: start: 20100527, end: 20100527
  5. ESTRATEST [Concomitant]
     Dosage: 5 MG, UNK
     Route: 048
  6. NICOTINE [Concomitant]
     Route: 062
  7. ADDERALL XR 10 [Concomitant]
     Dosage: 25 MG, DAILY (1/D)
  8. FLONASE [Concomitant]
     Dosage: UNK, DAILY (1/D)
  9. XYZAL [Concomitant]
     Dosage: 5 MG, DAILY (1/D)
  10. BETA-CAROTIN [Concomitant]
     Dosage: 25000 U, DAILY (1/D)
  11. VITAMIN E [Concomitant]
  12. ACIDOPHILUS [Concomitant]
     Dosage: 10 MG, UNK

REACTIONS (1)
  - CEREBRAL ISCHAEMIA [None]
